FAERS Safety Report 24075853 (Version 9)
Quarter: 2025Q3

REPORT INFORMATION
  Report Type: Spontaneous
  Country: JP (occurrence: JP)
  Receive Date: 20240710
  Receipt Date: 20250801
  Transmission Date: 20251021
  Serious: Yes (Hospitalization, Other)
  Sender: OTSUKA
  Company Number: JP-OTSUKA-2024_014783

PATIENT
  Age: 82 Year
  Sex: Female
  Weight: 48.9 kg

DRUGS (2)
  1. REXULTI [Suspect]
     Active Substance: BREXPIPRAZOLE
     Indication: Schizophrenia
     Dosage: 1 TABLET/DAY, QD, AFTER DINNER
     Route: 048
     Dates: start: 20191029, end: 20191105
  2. ABILIFY [Concomitant]
     Active Substance: ARIPIPRAZOLE
     Indication: Product used for unknown indication
     Dosage: 1 TABLET/DAY, QD, AFTER BREAKFAST
     Route: 065

REACTIONS (24)
  - Internal haemorrhage [Unknown]
  - Hip surgery [Unknown]
  - Hallucination, auditory [Unknown]
  - Seizure [Unknown]
  - Ear disorder [Unknown]
  - Skin wrinkling [Unknown]
  - Peripheral swelling [Unknown]
  - Contusion [Unknown]
  - Feeding disorder [Unknown]
  - Hypoacusis [Unknown]
  - Osteoporosis [Unknown]
  - Madarosis [Unknown]
  - Dermatitis contact [Unknown]
  - Gait inability [Unknown]
  - Weight decreased [Unknown]
  - Hypoaesthesia [Unknown]
  - Eczema [Unknown]
  - Irritability [Unknown]
  - Fall [Unknown]
  - Asthenia [Unknown]
  - Facial spasm [Unknown]
  - Muscle spasms [Unknown]
  - Pain in extremity [Unknown]
  - Therapy cessation [Unknown]

NARRATIVE: CASE EVENT DATE: 20191001
